FAERS Safety Report 9478656 (Version 6)
Quarter: 2014Q3

REPORT INFORMATION
  Report Type: Spontaneous
  Country: DK (occurrence: DK)
  Receive Date: 20130827
  Receipt Date: 20140829
  Transmission Date: 20150326
  Serious: Yes (Other)
  Sender: FDA-Public Use
  Company Number: DK-009507513-1307DNK003774

PATIENT
  Age: 83 Year
  Sex: Female

DRUGS (8)
  1. HEXALID [Concomitant]
     Dosage: STYRKE: 5 MG
     Route: 048
  2. PROLIA [Suspect]
     Active Substance: DENOSUMAB
     Dosage: STYRKE: 60 MG/ML. INJEKTION HVERT ?. ?R
     Route: 058
     Dates: start: 20110622, end: 20120615
  3. FURIX [Concomitant]
     Active Substance: FUROSEMIDE
     Indication: DIURETIC THERAPY
     Dosage: UNK
  4. ACLASTA [Suspect]
     Active Substance: ZOLEDRONIC ACID
     Indication: OSTEOPOROSIS
     Dosage: 5 MG, UNK
     Dates: start: 20090325, end: 20100510
  5. FOSAMAX [Suspect]
     Active Substance: ALENDRONATE SODIUM
     Indication: OSTEOPOROSIS
     Dosage: 70 MG, QW
     Route: 048
     Dates: start: 2002, end: 2007
  6. ACLASTA [Suspect]
     Active Substance: ZOLEDRONIC ACID
     Dosage: 5 MG, UNK
     Dates: start: 20090325, end: 20100510
  7. PROLIA [Suspect]
     Active Substance: DENOSUMAB
     Indication: OSTEOPOROSIS
     Dosage: 60 MG/ML, Q6M
     Route: 058
     Dates: start: 20110622, end: 20120701
  8. HEXALID [Concomitant]
     Indication: SEDATIVE THERAPY
     Dosage: STYRKE: 5MG
     Route: 048

REACTIONS (2)
  - Sequestrectomy [Unknown]
  - Osteonecrosis of jaw [Recovered/Resolved with Sequelae]

NARRATIVE: CASE EVENT DATE: 20120615
